FAERS Safety Report 9778198 (Version 3)
Quarter: 2014Q3

REPORT INFORMATION
  Report Type: Spontaneous
  Country: US (occurrence: US)
  Receive Date: 20131223
  Receipt Date: 20140721
  Transmission Date: 20150326
  Serious: Yes (Other)
  Sender: FDA-Public Use
  Company Number: US-AMGEN-USASP2013089307

PATIENT
  Age: 34 Year
  Sex: Female
  Weight: 63.49 kg

DRUGS (2)
  1. NEUPOGEN [Suspect]
     Active Substance: FILGRASTIM
     Indication: IDIOPATHIC NEUTROPENIA
     Dosage: 20-30 MCG DAILY
     Route: 058
  2. FLU [Concomitant]
     Active Substance: INFLUENZA VIRUS VACCINE
     Dosage: UNK
     Dates: start: 20131023

REACTIONS (3)
  - Vaginal haemorrhage [Unknown]
  - Urinary tract infection [Unknown]
  - Abortion spontaneous [Unknown]

NARRATIVE: CASE EVENT DATE: 2013
